FAERS Safety Report 11815412 (Version 6)
Quarter: 2016Q3

REPORT INFORMATION
  Report Type: Report from Study
  Country: JP (occurrence: JP)
  Receive Date: 20151209
  Receipt Date: 20160817
  Transmission Date: 20161109
  Serious: Yes (Hospitalization, Other)
  Sender: FDA-Public Use
  Company Number: JP-INCYTE CORPORATION-2015IN006406

PATIENT
  Age: 73 Year
  Sex: Female
  Weight: 45 kg

DRUGS (3)
  1. JAKAFI [Suspect]
     Active Substance: RUXOLITINIB
     Dosage: 7.5 MG, BID
     Route: 048
     Dates: start: 20141224, end: 20151124
  2. JAKAFI [Suspect]
     Active Substance: RUXOLITINIB
     Dosage: 12.5 MG, BID
     Route: 048
     Dates: start: 20141203, end: 20141223
  3. JAKAFI [Suspect]
     Active Substance: RUXOLITINIB
     Indication: MYELOFIBROSIS
     Dosage: 15 MG, BID
     Route: 048
     Dates: start: 20141031, end: 20141202

REACTIONS (9)
  - Bone lesion [Unknown]
  - Hepatic neoplasm [Unknown]
  - Metastases to liver [Unknown]
  - Gamma-glutamyltransferase increased [Not Recovered/Not Resolved]
  - Metastases to spleen [Unknown]
  - Neuroendocrine tumour [Not Recovered/Not Resolved]
  - Metastases to lung [Unknown]
  - Blood alkaline phosphatase increased [Not Recovered/Not Resolved]
  - Nodule [Unknown]

NARRATIVE: CASE EVENT DATE: 20151104
